FAERS Safety Report 19361346 (Version 3)
Quarter: 2021Q4

REPORT INFORMATION
  Report Type: Report from Study
  Country: KR (occurrence: KR)
  Receive Date: 20210603
  Receipt Date: 20211123
  Transmission Date: 20220303
  Serious: Yes (Other)
  Sender: FDA-Public Use
  Company Number: KR-KYOWAKIRIN-2021AKK009306

PATIENT
  Age: 63 Year
  Sex: Female

DRUGS (18)
  1. FILGRASTIM [Suspect]
     Active Substance: FILGRASTIM
     Indication: Product used for unknown indication
     Dosage: UNK
     Route: 065
     Dates: start: 20180412, end: 20180813
  2. CARFILZOMIB [Concomitant]
     Active Substance: CARFILZOMIB
     Indication: Product used for unknown indication
     Dosage: 43.2 MILLIGRAM
     Route: 065
     Dates: start: 20180322
  3. ACETYLSALICYLIC ACID [Concomitant]
     Indication: Product used for unknown indication
     Dosage: UNK
     Route: 065
     Dates: start: 20180322, end: 20180404
  4. CHLORPHENIRAMINE MALEATE [Concomitant]
     Active Substance: CHLORPHENIRAMINE MALEATE
     Indication: Product used for unknown indication
     Dosage: UNK
     Route: 065
     Dates: start: 20180322
  5. DEXAMETHASONE [Concomitant]
     Active Substance: DEXAMETHASONE
     Indication: Product used for unknown indication
     Dosage: UNK
     Route: 065
     Dates: start: 20180322
  6. DULOXETINE [Concomitant]
     Active Substance: DULOXETINE
     Indication: Product used for unknown indication
     Dosage: UNK
     Route: 065
     Dates: start: 20180322
  7. HYDROCORTISONE [Concomitant]
     Active Substance: HYDROCORTISONE
     Indication: Product used for unknown indication
     Dosage: UNK
     Route: 065
     Dates: start: 20180531, end: 20180706
  8. LENALIDOMIDE [Concomitant]
     Active Substance: LENALIDOMIDE
     Indication: Product used for unknown indication
     Dosage: UNK
     Route: 065
     Dates: start: 20180322
  9. LEVOFLOXACIN [Concomitant]
     Active Substance: LEVOFLOXACIN
     Indication: Product used for unknown indication
     Dosage: UNK
     Route: 065
     Dates: start: 20180426
  10. MAGNESIUM LACTATE [Concomitant]
     Active Substance: MAGNESIUM LACTATE
     Indication: Product used for unknown indication
     Dosage: UNK
     Route: 065
     Dates: start: 20180322, end: 20180722
  11. ACETAMINOPHEN [Concomitant]
     Active Substance: ACETAMINOPHEN
     Indication: Product used for unknown indication
     Dosage: UNK
     Route: 065
     Dates: start: 20180412, end: 20180813
  12. PREGABALIN [Concomitant]
     Active Substance: PREGABALIN
     Indication: Product used for unknown indication
     Dosage: UNK
     Route: 065
     Dates: start: 20180322
  13. RABEPRAZOLE [Concomitant]
     Active Substance: RABEPRAZOLE
     Indication: Product used for unknown indication
     Dosage: UNK
     Route: 065
     Dates: start: 20180322
  14. SILYMARIN 100 [Concomitant]
     Indication: Product used for unknown indication
     Dosage: UNK
     Route: 065
     Dates: start: 20180405, end: 20180418
  15. TAPENTADOL [Concomitant]
     Active Substance: TAPENTADOL
     Indication: Product used for unknown indication
     Dosage: UNK
     Route: 065
     Dates: start: 20180308
  16. TENOFOVIR DISOPROXIL [Concomitant]
     Active Substance: TENOFOVIR DISOPROXIL
     Indication: Product used for unknown indication
     Dosage: UNK
     Route: 065
     Dates: start: 20161121
  17. URSODIOL [Concomitant]
     Active Substance: URSODIOL
     Indication: Product used for unknown indication
     Dosage: UNK
     Route: 065
     Dates: start: 20180405, end: 20180418
  18. ZOLEDRONIC ACID [Concomitant]
     Active Substance: ZOLEDRONIC ACID
     Indication: Product used for unknown indication
     Dosage: UNK
     Route: 065
     Dates: start: 20180329

REACTIONS (1)
  - Neutropenia [Recovered/Resolved]

NARRATIVE: CASE EVENT DATE: 20180611
